FAERS Safety Report 16823593 (Version 1)
Quarter: 2019Q3

REPORT INFORMATION
  Report Type: Spontaneous
  Country: CN (occurrence: CN)
  Receive Date: 20190918
  Receipt Date: 20190918
  Transmission Date: 20191005
  Serious: Yes (Other)
  Sender: FDA-Public Use
  Company Number: CN-BAXTER-2019BAX018157

PATIENT
  Age: 36 Year
  Sex: Female
  Weight: 59 kg

DRUGS (12)
  1. ENDOXAN [Suspect]
     Active Substance: CYCLOPHOSPHAMIDE
     Indication: BREAST CANCER FEMALE
     Dosage: 2 CHEMOTHERAPIES. ENDOXAN + NS (NORMAL SALINE)
     Route: 042
  2. 0.9% SODIUM CHLORIDE INJECTION [Suspect]
     Active Substance: SODIUM CHLORIDE
     Indication: MEDICATION DILUTION
     Dosage: 2 CHEMOTHERAPIES. ENDOXAN + NS
     Route: 042
  3. 0.9% SODIUM CHLORIDE INJECTION [Suspect]
     Active Substance: SODIUM CHLORIDE
     Dosage: DOSE RE-INTRODUCED. TAXOTERE + NS
     Route: 041
  4. 0.9% SODIUM CHLORIDE INJECTION [Suspect]
     Active Substance: SODIUM CHLORIDE
     Dosage: THIRD CHEMOTHERAPY. TAXOTERE 120 MG + NS
     Route: 041
     Dates: start: 20190715, end: 20190715
  5. TAXOTERE [Suspect]
     Active Substance: DOCETAXEL
     Dosage: THIRD CHEMOTHERAPY. TAXOTERE + NS 250 ML
     Route: 041
     Dates: start: 20190715, end: 20190715
  6. ENDOXAN [Suspect]
     Active Substance: CYCLOPHOSPHAMIDE
     Dosage: DOSE RE-INTRODUCED. ENDOXAN + NS
     Route: 042
  7. 0.9% SODIUM CHLORIDE INJECTION [Suspect]
     Active Substance: SODIUM CHLORIDE
     Dosage: 2 CHEMOTHERAPIES. TAXOTERE + NS
     Route: 041
  8. 0.9% SODIUM CHLORIDE INJECTION [Suspect]
     Active Substance: SODIUM CHLORIDE
     Dosage: THIRD CHEMOTHERAPY. ENDOXAN 900 MG + NS
     Route: 042
     Dates: start: 20190715, end: 20190715
  9. 0.9% SODIUM CHLORIDE INJECTION [Suspect]
     Active Substance: SODIUM CHLORIDE
     Dosage: DOSE RE-INTRODUCED. ENDOXAN + NS
     Route: 042
  10. TAXOTERE [Suspect]
     Active Substance: DOCETAXEL
     Indication: BREAST CANCER FEMALE
     Dosage: 2 CHEMOTHERAPIES. TAXOTERE + NS
     Route: 041
  11. TAXOTERE [Suspect]
     Active Substance: DOCETAXEL
     Dosage: DOSE RE-INTRODUCED. TAXOTERE + NS
     Route: 041
  12. ENDOXAN [Suspect]
     Active Substance: CYCLOPHOSPHAMIDE
     Dosage: THIRD CHEMOTHERAPY. ENDOXAN + NS 45 ML
     Route: 042
     Dates: start: 20190715, end: 20190715

REACTIONS (1)
  - Agranulocytosis [Recovered/Resolved]

NARRATIVE: CASE EVENT DATE: 20190722
